FAERS Safety Report 15785881 (Version 1)
Quarter: 2019Q1

REPORT INFORMATION
  Report Type: Spontaneous
  Country: US (occurrence: US)
  Receive Date: 20190101
  Receipt Date: 20190101
  Transmission Date: 20190417
  Serious: Yes (Hospitalization, Disabling)
  Sender: FDA-Public Use
  Company Number: None

PATIENT
  Age: 37 Year
  Sex: Female
  Weight: 65.25 kg

DRUGS (5)
  1. COSOPT [Concomitant]
     Active Substance: DORZOLAMIDE HYDROCHLORIDE\TIMOLOL MALEATE
  2. PREDNISOLONE. [Concomitant]
     Active Substance: PREDNISOLONE
  3. MOXIFLOXACIN HCL 400 MG TABLETS [Suspect]
     Active Substance: MOXIFLOXACIN HYDROCHLORIDE
     Indication: SINUSITIS
     Dosage: ?          QUANTITY:10 TABLET(S);?
     Route: 048
  4. PILOCARPINE. [Concomitant]
     Active Substance: PILOCARPINE
  5. ALPHAGAN P [Concomitant]
     Active Substance: BRIMONIDINE TARTRATE

REACTIONS (6)
  - Vision blurred [None]
  - Ocular hyperaemia [None]
  - Mydriasis [None]
  - Photophobia [None]
  - Night blindness [None]
  - Intraocular pressure increased [None]

NARRATIVE: CASE EVENT DATE: 20170925
